FAERS Safety Report 21772037 (Version 1)
Quarter: 2022Q4

REPORT INFORMATION
  Report Type: Spontaneous
  Country: US (occurrence: None)
  Receive Date: 20221222
  Receipt Date: 20221222
  Transmission Date: 20230113
  Serious: Yes (Hospitalization, Disabling)
  Sender: FDA-Public Use
  Company Number: None

PATIENT
  Age: 66 Year
  Sex: Male
  Weight: 90 kg

DRUGS (4)
  1. KEYTRUDA [Suspect]
     Active Substance: PEMBROLIZUMAB
     Indication: Renal cell carcinoma
     Dosage: OTHER FREQUENCY : EVERY 3-4 WEEKS;?
     Dates: start: 20221019, end: 20221019
  2. High blood pressure med [Concomitant]
  3. Metabolism [Concomitant]
  4. Renal cell carcinoma med [Concomitant]

REACTIONS (8)
  - Influenza like illness [None]
  - Abdominal pain [None]
  - Cardiac disorder [None]
  - Myasthenia gravis [None]
  - Paralysis [None]
  - Diaphragmatic disorder [None]
  - Transfusion [None]
  - Dysphagia [None]

NARRATIVE: CASE EVENT DATE: 20221019
